FAERS Safety Report 22030931 (Version 1)
Quarter: 2023Q1

REPORT INFORMATION
  Report Type: Spontaneous
  Country: US (occurrence: US)
  Receive Date: 20230223
  Receipt Date: 20230223
  Transmission Date: 20230417
  Serious: Yes (Other)
  Sender: FDA-Public Use
  Company Number: US-TAKEDA-2022TUS081907

PATIENT
  Sex: Female
  Weight: 61 kg

DRUGS (2)
  1. DEXILANT [Suspect]
     Active Substance: DEXLANSOPRAZOLE
     Indication: Gastrooesophageal reflux disease
     Dosage: 30 MILLIGRAM, QD
     Route: 065
  2. ZETIA [Concomitant]
     Active Substance: EZETIMIBE
     Indication: Blood cholesterol abnormal
     Dosage: 10 MILLIGRAM, QD

REACTIONS (8)
  - Cardiac flutter [Unknown]
  - Incorrect product administration duration [Unknown]
  - Therapeutic product effect decreased [Unknown]
  - Extrasystoles [Unknown]
  - Chest discomfort [Unknown]
  - Eructation [Unknown]
  - Dyspnoea [Unknown]
  - Flatulence [Unknown]
